FAERS Safety Report 6332897-2 (Version None)
Quarter: 2009Q3

REPORT INFORMATION
  Report Type: 
  Country: None (occurrence: None)
  Receive Date: 20090828
  Receipt Date: 20090825
  Transmission Date: 20100115
  Serious: Yes (Hospitalization)
  Sender: FDA-Public Use
  Company Number: DE-JNJFOC-20090807790

PATIENT
  Age: 21 Year
  Sex: Male

DRUGS (1)
  1. CYCLOBENZAPRINE [Suspect]
     Indication: BACK PAIN
     Dosage: FOR 5 DAYS
     Route: 048

REACTIONS (6)
  - BLOOD BILIRUBIN INCREASED [None]
  - HEART RATE INCREASED [None]
  - MYOCLONUS [None]
  - NYSTAGMUS [None]
  - PROTEIN TOTAL INCREASED [None]
  - TORTICOLLIS [None]
